FAERS Safety Report 18120034 (Version 2)
Quarter: 2020Q4

REPORT INFORMATION
  Report Type: Spontaneous
  Country: DE (occurrence: DE)
  Receive Date: 20200806
  Receipt Date: 20201117
  Transmission Date: 20210113
  Serious: Yes (Other)
  Sender: FDA-Public Use
  Company Number: DE-SUN PHARMACEUTICAL INDUSTRIES LTD-2020RR-256272

PATIENT
  Sex: Female

DRUGS (1)
  1. CIPRO BASICS 500MG FILMTABLETTEN [Suspect]
     Active Substance: CIPROFLOXACIN HYDROCHLORIDE
     Indication: PRODUCT USED FOR UNKNOWN INDICATION
     Dosage: UNK
     Route: 065
     Dates: start: 20200403, end: 20200407

REACTIONS (33)
  - Speech disorder [Unknown]
  - Amnesia [Unknown]
  - Asthenia [Unknown]
  - Muscle discomfort [Unknown]
  - Fatigue [Unknown]
  - Decreased appetite [Unknown]
  - Abdominal distension [Unknown]
  - Panic attack [Unknown]
  - Depression [Unknown]
  - Nausea [Unknown]
  - Tendon pain [Unknown]
  - Disturbance in attention [Unknown]
  - Psychomotor hyperactivity [Unknown]
  - Nightmare [Unknown]
  - Hyperhidrosis [Unknown]
  - Myalgia [Unknown]
  - Dry eye [Unknown]
  - Oropharyngeal pain [Unknown]
  - Photosensitivity reaction [Unknown]
  - Arrhythmia [Unknown]
  - Malaise [Unknown]
  - Skin degenerative disorder [Unknown]
  - Back pain [Unknown]
  - Muscle tightness [Unknown]
  - Insomnia [Unknown]
  - Impaired gastric emptying [Unknown]
  - Restlessness [Unknown]
  - Tension headache [Unknown]
  - Vertigo [Unknown]
  - Alopecia [Unknown]
  - Arthralgia [Unknown]
  - Weight decreased [Unknown]
  - Fear [Unknown]

NARRATIVE: CASE EVENT DATE: 20200403
